FAERS Safety Report 10267740 (Version 1)
Quarter: 2014Q2

REPORT INFORMATION
  Report Type: Report from Study
  Country: ES (occurrence: ES)
  Receive Date: 20140630
  Receipt Date: 20140630
  Transmission Date: 20141212
  Serious: Yes (Hospitalization, Other)
  Sender: FDA-Public Use
  Company Number: PHHY2014ES078865

PATIENT
  Age: 66 Year
  Sex: Male
  Weight: 78 kg

DRUGS (8)
  1. EVEROLIMUS [Suspect]
     Indication: RENAL CELL CARCINOMA
     Dosage: 5 MG, QD
     Route: 048
     Dates: start: 20121015, end: 20140528
  2. LENVATINIB [Suspect]
     Indication: RENAL CELL CARCINOMA
     Dosage: 18 MG, QD
     Route: 048
     Dates: start: 20121015, end: 20121124
  3. LENVATINIB [Suspect]
     Dosage: 18 MG, QD
     Route: 048
     Dates: start: 20121127, end: 20121210
  4. LENVATINIB [Suspect]
     Dosage: 14 MG, QD
     Route: 048
     Dates: start: 20121217, end: 20130204
  5. LENVATINIB [Suspect]
     Dosage: 10 MG, QD
     Route: 048
     Dates: start: 20130212, end: 20130508
  6. LENVATINIB [Suspect]
     Dosage: 8 MG, QD
     Route: 048
     Dates: start: 20130513, end: 20130919
  7. LENVATINIB [Suspect]
     Dosage: 8 MG, QD
     Route: 048
     Dates: start: 20131004, end: 20140430
  8. LENVATINIB [Suspect]
     Dosage: 8 MG, QD
     Route: 048
     Dates: start: 20130502, end: 20130528

REACTIONS (6)
  - Pneumonitis [Not Recovered/Not Resolved]
  - Mucosal inflammation [Not Recovered/Not Resolved]
  - Dyspnoea [Not Recovered/Not Resolved]
  - Cough [Not Recovered/Not Resolved]
  - Decreased appetite [Not Recovered/Not Resolved]
  - Lymphadenopathy [Unknown]
